FAERS Safety Report 4952285-0 (Version None)
Quarter: 2006Q1

REPORT INFORMATION
  Report Type: 
  Country: None (occurrence: None)
  Receive Date: 20060131
  Receipt Date: 20050524
  Transmission Date: 20060701
  Serious: Yes (Other)
  Sender: FDA-Public Use
  Company Number: WAES 0506USA00061

PATIENT
  Age: 42 Year
  Sex: Male

DRUGS (2)
  1. INVANZ [Suspect]
     Indication: BURSITIS
     Dosage: 1 GM DAILY
     Dates: end: 20050501
  2. INVANZ [Suspect]
     Indication: CELLULITIS STREPTOCOCCAL
     Dosage: 1 GM DAILY
     Dates: end: 20050501

REACTIONS (1)
  - CONVULSION [None]
